FAERS Safety Report 13993702 (Version 1)
Quarter: 2017Q3

REPORT INFORMATION
  Report Type: Spontaneous
  Country: FR (occurrence: FR)
  Receive Date: 20170920
  Receipt Date: 20170920
  Transmission Date: 20171128
  Serious: Yes (Death, Hospitalization)
  Sender: FDA-Public Use
  Company Number: FR-MYLANLABS-2017M1058436

PATIENT
  Age: 44 Year
  Sex: Male
  Weight: 170 kg

DRUGS (1)
  1. ROCURONIUM [Suspect]
     Active Substance: ROCURONIUM BROMIDE
     Indication: INDUCTION OF ANAESTHESIA
     Route: 065

REACTIONS (3)
  - Anaphylactic reaction [Fatal]
  - Myocarditis [Fatal]
  - Multiple organ dysfunction syndrome [Fatal]
